FAERS Safety Report 8756234 (Version 1)
Quarter: 2012Q4

REPORT INFORMATION
  Report Type: 
  Country: FR (occurrence: FR)
  Receive Date: 20120828
  Receipt Date: 20120828
  Transmission Date: 20130627
  Serious: Yes (Other)
  Sender: FDA-Public Use
  Company Number: PHHY2012FR073955

PATIENT
  Sex: Male

DRUGS (1)
  1. STALEVO [Suspect]

REACTIONS (1)
  - Asthma [Unknown]
